FAERS Safety Report 9187901 (Version 1)
Quarter: 2013Q1

REPORT INFORMATION
  Report Type: Spontaneous
  Country: US (occurrence: US)
  Receive Date: 20130325
  Receipt Date: 20130325
  Transmission Date: 20140127
  Serious: No
  Sender: FDA-Public Use
  Company Number: US-MYLANLABS-2012S1016461

PATIENT
  Age: 72 Year
  Sex: Female
  Weight: 71.22 kg

DRUGS (6)
  1. FENTANYL TRANSDERMAL SYSTEM [Suspect]
     Indication: BACK PAIN
     Dosage: Q72HR
     Route: 062
     Dates: start: 201204
  2. EFFEXOR [Concomitant]
     Route: 048
  3. LISINOPRIL [Concomitant]
     Indication: BLOOD PRESSURE
     Route: 048
  4. NAPROXEN [Concomitant]
     Indication: INFLAMMATION
     Dosage: LAST GIVEN 30-JUL-2012
     Route: 048
     Dates: end: 20120730
  5. HYDROCODONE [Concomitant]
     Indication: BREAKTHROUGH PAIN
     Route: 048
  6. NORCO [Concomitant]
     Dosage: LAST GIVEN 30-JUL-2012
     Dates: end: 20120730

REACTIONS (6)
  - Drug ineffective [Not Recovered/Not Resolved]
  - Back pain [Not Recovered/Not Resolved]
  - Application site rash [Not Recovered/Not Resolved]
  - Application site pruritus [Not Recovered/Not Resolved]
  - Application site erythema [Not Recovered/Not Resolved]
  - Application site pain [Not Recovered/Not Resolved]
